FAERS Safety Report 4477153-2 (Version None)
Quarter: 2004Q4

REPORT INFORMATION
  Report Type: 
  Country: None (occurrence: None)
  Receive Date: 20041018
  Receipt Date: 20030605
  Transmission Date: 20050328
  Serious: Yes (Hospitalization, Other)
  Sender: FDA-Public Use
  Company Number: US-MERCK-0306USA00728

PATIENT
  Age: 45 Year
  Sex: Female
  Weight: 75 kg

DRUGS (2)
  1. VIOXX [Suspect]
     Route: 048
     Dates: end: 20010101
  2. VIOXX [Suspect]
     Route: 048
     Dates: start: 20010101

REACTIONS (44)
  - ADVERSE EVENT [None]
  - ANGINA PECTORIS [None]
  - ARTHROPOD BITE [None]
  - ASTHMA [None]
  - BLOOD PRESSURE INCREASED [None]
  - BRONCHITIS [None]
  - CARDIOMEGALY [None]
  - CHRONIC OBSTRUCTIVE AIRWAYS DISEASE [None]
  - CONTUSION [None]
  - CONVULSION [None]
  - CORONARY ARTERY OCCLUSION [None]
  - DEPRESSION [None]
  - DYSARTHRIA [None]
  - DYSPHAGIA [None]
  - DYSURIA [None]
  - ENCEPHALOPATHY [None]
  - FALL [None]
  - FOOT FRACTURE [None]
  - FRACTURED COCCYX [None]
  - GASTROOESOPHAGEAL REFLUX DISEASE [None]
  - HAEMATURIA [None]
  - HEAD INJURY [None]
  - HEADACHE [None]
  - HOARSENESS [None]
  - HYPERTENSIVE CRISIS [None]
  - HYPOTENSION [None]
  - INSOMNIA [None]
  - INTERVERTEBRAL DISC DISORDER [None]
  - JOINT SPRAIN [None]
  - LABILE HYPERTENSION [None]
  - LOSS OF CONSCIOUSNESS [None]
  - MALAISE [None]
  - MENTAL IMPAIRMENT [None]
  - MYALGIA [None]
  - NAUSEA [None]
  - OSTEOARTHRITIS [None]
  - RESPIRATORY DISTRESS [None]
  - SEBORRHOEIC KERATOSIS [None]
  - SKELETAL INJURY [None]
  - SKIN PAPILLOMA [None]
  - SLEEP WALKING [None]
  - UPPER RESPIRATORY TRACT INFECTION [None]
  - URINARY TRACT INFECTION [None]
  - URTICARIA [None]
